FAERS Safety Report 11361258 (Version 1)
Quarter: 2015Q3

REPORT INFORMATION
  Report Type: Spontaneous
  Country: GB (occurrence: GB)
  Receive Date: 20150810
  Receipt Date: 20150810
  Transmission Date: 20151125
  Serious: Yes (Life-Threatening, Other)
  Sender: FDA-Public Use
  Company Number: GB-BAYER-2015-391662

PATIENT
  Sex: Female
  Weight: 61.68 kg

DRUGS (5)
  1. MIRENA [Suspect]
     Active Substance: LEVONORGESTREL
     Indication: CONTRACEPTION
     Dosage: 20 MCG/24HR, CONT
     Route: 015
     Dates: start: 20010801, end: 20150201
  2. COD LIVER OIL [Concomitant]
     Active Substance: COD LIVER OIL
  3. EVENING PRIMROSE OIL [Concomitant]
     Active Substance: EVENING PRIMROSE OIL
  4. CENTRUM [Concomitant]
     Active Substance: VITAMINS
     Dosage: 0.5 UNK, UNK
  5. BLACK COHOSH EXTRACT [Concomitant]
     Dosage: 0.5 UNK, UNK

REACTIONS (2)
  - Sleep disorder [Recovered/Resolved]
  - Panic reaction [Recovered/Resolved]

NARRATIVE: CASE EVENT DATE: 20010801
